FAERS Safety Report 15280808 (Version 1)
Quarter: 2018Q3

REPORT INFORMATION
  Report Type: Report from Study
  Country: US (occurrence: US)
  Receive Date: 20180815
  Receipt Date: 20180815
  Transmission Date: 20181010
  Serious: Yes (Hospitalization, Other)
  Sender: FDA-Public Use
  Company Number: PHEH2018US033302

PATIENT
  Sex: Male

DRUGS (1)
  1. COSENTYX [Suspect]
     Active Substance: SECUKINUMAB
     Indication: ANKYLOSING SPONDYLITIS
     Dosage: 150 MG, QMO
     Route: 058

REACTIONS (6)
  - Electrolyte imbalance [Recovering/Resolving]
  - Chromaturia [Unknown]
  - Blood sodium decreased [Unknown]
  - Movement disorder [Unknown]
  - Blood potassium decreased [Unknown]
  - Nephrolithiasis [Unknown]
